FAERS Safety Report 4592021-3 (Version None)
Quarter: 2005Q1

REPORT INFORMATION
  Report Type: 
  Country: None (occurrence: None)
  Receive Date: 20050125
  Receipt Date: 20041119
  Transmission Date: 20050727
  Serious: No
  Sender: FDA-Public Use
  Company Number: USA040773310

PATIENT
  Age: 74 Year
  Sex: Female

DRUGS (4)
  1. FORTEO [Suspect]
     Indication: PROPHYLAXIS
     Dates: start: 20040601
  2. CALTRATE + D [Concomitant]
  3. MOBIC [Concomitant]
  4. ACTONEL [Concomitant]

REACTIONS (4)
  - BLOOD CALCIUM INCREASED [None]
  - FEELING ABNORMAL [None]
  - MEMORY IMPAIRMENT [None]
  - MUSCULOSKELETAL DISCOMFORT [None]
